FAERS Safety Report 21772965 (Version 1)
Quarter: 2022Q4

REPORT INFORMATION
  Report Type: Spontaneous
  Country: US (occurrence: US)
  Receive Date: 20221223
  Receipt Date: 20221223
  Transmission Date: 20230112
  Serious: No
  Sender: FDA-Public Use
  Company Number: US-SA-SAC20221221001270

PATIENT
  Sex: Female

DRUGS (31)
  1. DUPIXENT [Suspect]
     Active Substance: DUPILUMAB
     Indication: Asthma
     Dosage: 300 MG, QOW
     Route: 058
     Dates: start: 202112
  2. DUPIXENT [Suspect]
     Active Substance: DUPILUMAB
     Indication: Systemic lupus erythematosus
  3. BENLYSTA [Concomitant]
     Active Substance: BELIMUMAB
  4. TYLENOL PM EXTRA STRENGTH [Concomitant]
     Active Substance: ACETAMINOPHEN\DIPHENHYDRAMINE HYDROCHLORIDE
  5. VITAMIN D NOS [Concomitant]
     Active Substance: VITAMIN D NOS
  6. ONDANSETRON HCL [Concomitant]
     Active Substance: ONDANSETRON HYDROCHLORIDE
  7. ARNUITY ELLIPTA [Concomitant]
     Active Substance: FLUTICASONE FUROATE
  8. CYANOCOBALAMIN [Concomitant]
     Active Substance: CYANOCOBALAMIN
  9. DOXEPIN HCL [Concomitant]
     Active Substance: DOXEPIN HYDROCHLORIDE
  10. DAPSONE [Concomitant]
     Active Substance: DAPSONE
  11. EPIPEN [EPINEPHRINE] [Concomitant]
  12. RAYOS [Concomitant]
     Active Substance: PREDNISONE
  13. RELISTOR [Concomitant]
     Active Substance: METHYLNALTREXONE BROMIDE
  14. NUCYNTA [Concomitant]
     Active Substance: TAPENTADOL HYDROCHLORIDE
  15. DICYCLOMINE HYDROCHLORIDE [Concomitant]
     Active Substance: DICYCLOMINE HYDROCHLORIDE
  16. OMEPRAZOLE [Concomitant]
     Active Substance: OMEPRAZOLE
  17. FAMOTIDINE [Concomitant]
     Active Substance: FAMOTIDINE
  18. WELLBUTRIN XL [Concomitant]
     Active Substance: BUPROPION HYDROCHLORIDE
  19. LOSARTAN POTASSIUM [Concomitant]
     Active Substance: LOSARTAN POTASSIUM
  20. ALENDRONATE SODIUM [Concomitant]
     Active Substance: ALENDRONATE SODIUM
  21. CYMBALTA [Concomitant]
     Active Substance: DULOXETINE HYDROCHLORIDE
  22. VENTOLIN HFA [Concomitant]
     Active Substance: ALBUTEROL SULFATE
  23. IPRATROPIUM BROMIDE [Concomitant]
     Active Substance: IPRATROPIUM BROMIDE
  24. XOPENEX [Concomitant]
     Active Substance: LEVALBUTEROL HYDROCHLORIDE
  25. TRELEGY ELLIPTA [Concomitant]
     Active Substance: FLUTICASONE FUROATE\UMECLIDINIUM BROMIDE\VILANTEROL TRIFENATATE
  26. PREDNISONE [Concomitant]
     Active Substance: PREDNISONE
  27. SINGULAIR [Concomitant]
     Active Substance: MONTELUKAST SODIUM
  28. HYDROCHLOROTHIAZIDE [Concomitant]
     Active Substance: HYDROCHLOROTHIAZIDE
  29. PHAZYME [Concomitant]
     Active Substance: DIMETHICONE 410
  30. MODERNA COVID-19 VACCINE [Concomitant]
     Active Substance: ELASOMERAN
  31. CYMBALTA [Concomitant]
     Active Substance: DULOXETINE HYDROCHLORIDE

REACTIONS (4)
  - Contusion [Unknown]
  - Abdominal discomfort [Unknown]
  - Pigmentation disorder [Unknown]
  - Product used for unknown indication [Unknown]
